FAERS Safety Report 14718973 (Version 1)
Quarter: 2018Q2

REPORT INFORMATION
  Report Type: Report from Study
  Country: None (occurrence: US)
  Receive Date: 20180405
  Receipt Date: 20180405
  Transmission Date: 20180711
  Serious: Yes (Other)
  Sender: FDA-Public Use
  Company Number: US-ABBVIE-18K-163-2256619-00

PATIENT
  Sex: Female

DRUGS (1)
  1. HUMIRA [Suspect]
     Active Substance: ADALIMUMAB
     Indication: HIDRADENITIS
     Route: 058

REACTIONS (9)
  - Injection site nodule [Unknown]
  - Allergy to animal [Unknown]
  - Renal surgery [Unknown]
  - Weight decreased [Unknown]
  - Injection site pain [Unknown]
  - Nasopharyngitis [Unknown]
  - Hidradenitis [Unknown]
  - Crohn^s disease [Unknown]
  - Injection site swelling [Unknown]
